FAERS Safety Report 15329842 (Version 1)
Quarter: 2018Q3

REPORT INFORMATION
  Report Type: Spontaneous
  Country: US (occurrence: US)
  Receive Date: 20180808
  Receipt Date: 20180808
  Transmission Date: 20181010
  Serious: No
  Sender: FDA-Public Use
  Company Number: None

PATIENT

DRUGS (1)
  1. INFASURF [Suspect]
     Active Substance: CALFACTANT

REACTIONS (3)
  - Oxygen saturation decreased [None]
  - Product physical consistency issue [None]
  - Endotracheal intubation complication [None]

NARRATIVE: CASE EVENT DATE: 201807
